FAERS Safety Report 12133198 (Version 2)
Quarter: 2016Q1

REPORT INFORMATION
  Report Type: Spontaneous
  Country: US (occurrence: US)
  Receive Date: 20160301
  Receipt Date: 20160311
  Transmission Date: 20160526
  Serious: Yes (Hospitalization)
  Sender: FDA-Public Use
  Company Number: US-BEH-2016059229

PATIENT
  Sex: Female
  Weight: 86 kg

DRUGS (36)
  1. ACETAMINOPHEN. [Concomitant]
     Active Substance: ACETAMINOPHEN
  2. VITAMIN D [Concomitant]
     Active Substance: CHOLECALCIFEROL
  3. TRAMADOL. [Concomitant]
     Active Substance: TRAMADOL
  4. POLYETHYLENE [Concomitant]
     Active Substance: HIGH DENSITY POLYETHYLENE
  5. SINGULAIR [Concomitant]
     Active Substance: MONTELUKAST SODIUM
  6. SPIRIVA [Concomitant]
     Active Substance: TIOTROPIUM BROMIDE MONOHYDRATE
  7. ONDANSETRON [Concomitant]
     Active Substance: ONDANSETRON
  8. ZOFRAN [Concomitant]
     Active Substance: ONDANSETRON HYDROCHLORIDE
  9. DOXYCYCLINE. [Concomitant]
     Active Substance: DOXYCYCLINE
  10. ZYRTEC [Concomitant]
     Active Substance: CETIRIZINE HYDROCHLORIDE
  11. PREDNISONE. [Concomitant]
     Active Substance: PREDNISONE
  12. CYMBALTA [Concomitant]
     Active Substance: DULOXETINE HYDROCHLORIDE
  13. BUSPIRONE [Concomitant]
     Active Substance: BUSPIRONE HYDROCHLORIDE
  14. HIZENTRA [Suspect]
     Active Substance: HUMAN IMMUNOGLOBULIN G
     Route: 058
     Dates: start: 20141002
  15. LIDOCAINE. [Concomitant]
     Active Substance: LIDOCAINE
  16. FLAGYL [Concomitant]
     Active Substance: METRONIDAZOLE\METRONIDAZOLE HYDROCHLORIDE
  17. RANITIDINE [Concomitant]
     Active Substance: RANITIDINE\RANITIDINE HYDROCHLORIDE
  18. TRAZODONE [Concomitant]
     Active Substance: TRAZODONE HYDROCHLORIDE
  19. EPIPEN [Concomitant]
     Active Substance: EPINEPHRINE
  20. LEVOFLOXACIN. [Concomitant]
     Active Substance: LEVOFLOXACIN
  21. HYOSCYAMINE. [Concomitant]
     Active Substance: HYOSCYAMINE
  22. POTASSIUM [Concomitant]
     Active Substance: POTASSIUM
  23. GABAPENTIN. [Concomitant]
     Active Substance: GABAPENTIN
  24. HIZENTRA [Suspect]
     Active Substance: HUMAN IMMUNOGLOBULIN G
     Indication: IMMUNODEFICIENCY COMMON VARIABLE
     Route: 058
     Dates: start: 20141002
  25. DIPHENHYDRAMINE. [Concomitant]
     Active Substance: DIPHENHYDRAMINE
  26. NASONEX [Concomitant]
     Active Substance: MOMETASONE FUROATE
  27. ADVAIR HFA [Concomitant]
     Active Substance: FLUTICASONE PROPIONATE\SALMETEROL XINAFOATE
  28. LEVAQUIN [Concomitant]
     Active Substance: LEVOFLOXACIN
  29. METRONIDAZOLE. [Concomitant]
     Active Substance: METRONIDAZOLE
  30. KLONOPIN [Concomitant]
     Active Substance: CLONAZEPAM
  31. LASIX [Concomitant]
     Active Substance: FUROSEMIDE
  32. CLARITIN [Concomitant]
     Active Substance: LORATADINE
  33. KEFLEX [Concomitant]
     Active Substance: CEPHALEXIN
  34. GUAIFENESIN. [Concomitant]
     Active Substance: GUAIFENESIN
  35. NORTRIPTYLINE [Concomitant]
     Active Substance: NORTRIPTYLINE
  36. ALBUTEROL. [Concomitant]
     Active Substance: ALBUTEROL

REACTIONS (3)
  - Breast cancer [Unknown]
  - Sepsis [Unknown]
  - Pneumonia [Unknown]
